FAERS Safety Report 11723201 (Version 1)
Quarter: 2015Q4

REPORT INFORMATION
  Report Type: Spontaneous
  Country: US (occurrence: None)
  Receive Date: 20151110
  Receipt Date: 20151110
  Transmission Date: 20160304
  Serious: Yes (Disabling)
  Sender: FDA-Public Use
  Company Number: None

PATIENT
  Age: 49 Year
  Sex: Female
  Weight: 104.33 kg

DRUGS (4)
  1. BIOTIN COMPLEX [Concomitant]
  2. MULTI VITAMIN [Concomitant]
     Active Substance: VITAMINS
  3. SUBOXONE [Suspect]
     Active Substance: BUPRENORPHINE HYDROCHLORIDE\NALOXONE HYDROCHLORIDE
     Indication: DRUG DEPENDENCE
     Dosage: 1.5 PILLS
     Route: 060
     Dates: start: 20101109, end: 20151103
  4. YASMIN BIRTH CONTROL [Concomitant]

REACTIONS (5)
  - Alopecia [None]
  - Apathy [None]
  - Loss of libido [None]
  - Acne [None]
  - Weight increased [None]

NARRATIVE: CASE EVENT DATE: 20150901
